FAERS Safety Report 5059792-3 (Version None)
Quarter: 2006Q3

REPORT INFORMATION
  Report Type: 
  Country: None (occurrence: None)
  Receive Date: 20060724
  Receipt Date: 20060323
  Transmission Date: 20061208
  Serious: Yes (Death)
  Sender: FDA-Public Use
  Company Number: GB-GLAXOSMITHKLINE-B0417232A

PATIENT
  Age: 18 Year
  Sex: Male

DRUGS (1)
  1. ZYBAN [Suspect]
     Route: 048

REACTIONS (11)
  - ANXIETY [None]
  - COMPLETED SUICIDE [None]
  - CONVULSION [None]
  - DISTURBANCE IN ATTENTION [None]
  - FEAR [None]
  - HEADACHE [None]
  - PAIN [None]
  - PALPITATIONS [None]
  - PERSONALITY CHANGE [None]
  - RASH [None]
  - SOMATOFORM DISORDER [None]
